FAERS Safety Report 20901544 (Version 2)
Quarter: 2022Q2

REPORT INFORMATION
  Report Type: Spontaneous
  Country: KR (occurrence: KR)
  Receive Date: 20220601
  Receipt Date: 20220608
  Transmission Date: 20220721
  Serious: No
  Sender: FDA-Public Use
  Company Number: KR-ELI_LILLY_AND_COMPANY-KR202202010977

PATIENT
  Age: 54 Year
  Sex: Male

DRUGS (5)
  1. CYRAMZA [Suspect]
     Active Substance: RAMUCIRUMAB
     Indication: Product used for unknown indication
     Dosage: 400 MG, CYCLICAL (1ST CYCLE)
     Route: 042
     Dates: start: 20220110
  2. CYRAMZA [Suspect]
     Active Substance: RAMUCIRUMAB
     Dosage: 400 MG, CYCLICAL (2ND CYCLE)
     Route: 042
     Dates: start: 20220124
  3. CYRAMZA [Suspect]
     Active Substance: RAMUCIRUMAB
     Dosage: 400 MG, CYCLICAL (3RD CYCLE)
     Route: 042
     Dates: start: 20220208
  4. CYRAMZA [Suspect]
     Active Substance: RAMUCIRUMAB
     Dosage: 400 MG, CYCLICAL (4TH CYCLE)
     Route: 042
     Dates: start: 20220221
  5. CYRAMZA [Suspect]
     Active Substance: RAMUCIRUMAB
     Dosage: 400 MG, CYCLICAL (5TH CYCLE)
     Route: 042
     Dates: start: 20220311

REACTIONS (4)
  - Feeling of body temperature change [Unknown]
  - Inappropriate schedule of product administration [Unknown]
  - Inappropriate schedule of product administration [Unknown]
  - Inappropriate schedule of product administration [Unknown]

NARRATIVE: CASE EVENT DATE: 20220221
